FAERS Safety Report 15433847 (Version 2)
Quarter: 2021Q1

REPORT INFORMATION
  Report Type: Spontaneous
  Country: US (occurrence: US)
  Receive Date: 20180927
  Receipt Date: 20210127
  Transmission Date: 20210419
  Serious: Yes (Other)
  Sender: FDA-Public Use
  Company Number: US-PURDUE PHARMA-USA-2018-0144803

PATIENT
  Age: 54 Year
  Sex: Female

DRUGS (3)
  1. HYDROMORPHONE HCL (SIMILAR TO 19?892) [Concomitant]
     Active Substance: HYDROMORPHONE HYDROCHLORIDE
     Indication: PAIN
     Dosage: 16 MG, DAILY
     Route: 048
     Dates: start: 20180718, end: 20180726
  2. OXYCODONE HYDROCHLORIDE. [Suspect]
     Active Substance: OXYCODONE HYDROCHLORIDE
     Indication: BREAKTHROUGH PAIN
     Dosage: 15 MG, QID
     Route: 048
  3. OXYCONTIN [Suspect]
     Active Substance: OXYCODONE HYDROCHLORIDE
     Indication: PRODUCT USED FOR UNKNOWN INDICATION
     Dosage: UNK
     Route: 048

REACTIONS (12)
  - Pain [Unknown]
  - Anxiety [Unknown]
  - Neck surgery [Unknown]
  - Insomnia [Not Recovered/Not Resolved]
  - Spinal operation [Unknown]
  - Back pain [Not Recovered/Not Resolved]
  - Nausea [Recovered/Resolved]
  - Unevaluable event [Recovered/Resolved]
  - Drug dependence [Unknown]
  - Emotional distress [Unknown]
  - Asthenia [Unknown]
  - Dyspnoea [Recovered/Resolved]

NARRATIVE: CASE EVENT DATE: 2010
